FAERS Safety Report 8376695-7 (Version None)
Quarter: 2012Q1

REPORT INFORMATION
  Report Type: 
  Country: None (occurrence: None)
  Receive Date: 20120323
  Receipt Date: 20110613
  Transmission Date: 20120608
  Serious: Yes (Life-Threatening, Hospitalization, Other)
  Sender: FDA-Public Use
  Company Number: 163-21880-10121055

PATIENT
  Age: 51 Year
  Sex: Male
  Weight: 79.4 kg

DRUGS (9)
  1. REVLIMID [Suspect]
     Indication: MULTIPLE MYELOMA
     Dosage: 15 MG, DAILY X 21 DAYS THEN OFF FOR 7 DAYS, PO, 5 MG, 1 IN 1 D, PO
     Route: 048
     Dates: start: 20100322
  2. CALCIUM WITH VITAMIN D (CALCIUM WITH VITAMIN D) [Concomitant]
  3. TRAMADOL HCL [Concomitant]
  4. RISPERDAL [Concomitant]
  5. LAMICTAL [Concomitant]
  6. DEXAMETHASONE [Concomitant]
  7. CYMBALTA [Concomitant]
  8. DARVOCET [Concomitant]
  9. AREDIA [Concomitant]

REACTIONS (2)
  - DEEP VEIN THROMBOSIS [None]
  - CELLULITIS [None]
